FAERS Safety Report 9529140 (Version 1)
Quarter: 2013Q3

REPORT INFORMATION
  Report Type: Spontaneous
  Country: JP (occurrence: JP)
  Receive Date: 20130917
  Receipt Date: 20130917
  Transmission Date: 20140515
  Serious: Yes (Life-Threatening, Other)
  Sender: FDA-Public Use
  Company Number: JP-ASTRAZENECA-2013SE69421

PATIENT
  Age: 67 Year
  Sex: Male

DRUGS (6)
  1. DIPRIVAN [Suspect]
     Indication: INDUCTION OF ANAESTHESIA
     Route: 042
  2. REMIFENTANIL [Concomitant]
     Indication: INDUCTION OF ANAESTHESIA
  3. REMIFENTANIL [Concomitant]
     Indication: MAINTENANCE OF ANAESTHESIA
  4. ROCURONIUM [Concomitant]
     Indication: HYPOTONIA
  5. ROCURONIUM [Concomitant]
     Indication: MAINTENANCE OF ANAESTHESIA
  6. FENTANYL [Concomitant]
     Indication: MAINTENANCE OF ANAESTHESIA

REACTIONS (1)
  - Hyperthermia malignant [Recovered/Resolved]
